FAERS Safety Report 9870023 (Version 1)
Quarter: 2014Q1

REPORT INFORMATION
  Report Type: Spontaneous
  Country: US (occurrence: US)
  Receive Date: 20140205
  Receipt Date: 20140205
  Transmission Date: 20141002
  Serious: No
  Sender: FDA-Public Use
  Company Number: US-GLAXOSMITHKLINE-A1033263A

PATIENT
  Sex: 0

DRUGS (1)
  1. VALACYCLOVIR [Suspect]
     Indication: PRODUCT USED FOR UNKNOWN INDICATION

REACTIONS (6)
  - Malaise [Unknown]
  - Pain [Unknown]
  - Headache [Unknown]
  - Diarrhoea [Unknown]
  - Dehydration [Unknown]
  - Hypotension [Unknown]
